FAERS Safety Report 19200309 (Version 3)
Quarter: 2022Q2

REPORT INFORMATION
  Report Type: Report from Study
  Country: US (occurrence: US)
  Receive Date: 20210430
  Receipt Date: 20220607
  Transmission Date: 20220721
  Serious: Yes (Other)
  Sender: FDA-Public Use
  Company Number: NVSC2021US090981

PATIENT
  Sex: Female

DRUGS (1)
  1. NEORAL [Suspect]
     Active Substance: CYCLOSPORINE
     Indication: Product used for unknown indication
     Dosage: UNK
     Route: 065

REACTIONS (7)
  - Uveitis [Unknown]
  - Macular oedema [Unknown]
  - Eye inflammation [Unknown]
  - Condition aggravated [Unknown]
  - Pruritus [Unknown]
  - Drug ineffective [Unknown]
  - Product dose omission issue [Unknown]
